FAERS Safety Report 13020108 (Version 1)
Quarter: 2016Q4

REPORT INFORMATION
  Report Type: Spontaneous
  Country: US (occurrence: US)
  Receive Date: 20161212
  Receipt Date: 20161212
  Transmission Date: 20170207
  Serious: No
  Sender: FDA-Public Use
  Company Number: US-009507513-1612USA001785

PATIENT
  Sex: Female

DRUGS (1)
  1. NEXPLANON [Suspect]
     Active Substance: ETONOGESTREL
     Indication: CONTRACEPTION
     Dosage: SINGLE DOSE OF 68 MG
     Route: 059
     Dates: start: 2015

REACTIONS (6)
  - Encapsulation reaction [Unknown]
  - Device difficult to use [Recovered/Resolved]
  - Device expulsion [Not Recovered/Not Resolved]
  - Implant site reaction [Unknown]
  - Implant site fibrosis [Unknown]
  - Anaesthesia procedure [Unknown]
